FAERS Safety Report 4933710-8 (Version None)
Quarter: 2006Q1

REPORT INFORMATION
  Report Type: 
  Country: None (occurrence: None)
  Receive Date: 20060126
  Receipt Date: 20051117
  Transmission Date: 20060701
  Serious: Yes (Life-Threatening, Other)
  Sender: FDA-Public Use
  Company Number: 19461

PATIENT

DRUGS (2)
  1. CLINDAMYCIN PHOSPHATE [Suspect]
  2. CLINDAMYCIN [Suspect]

REACTIONS (1)
  - CARDIAC ARREST [None]
